FAERS Safety Report 15191977 (Version 1)
Quarter: 2018Q3

REPORT INFORMATION
  Report Type: Spontaneous
  Country: CN (occurrence: CN)
  Receive Date: 20180724
  Receipt Date: 20180724
  Transmission Date: 20181010
  Serious: Yes (Hospitalization, Other)
  Sender: FDA-Public Use
  Company Number: CN-ELI_LILLY_AND_COMPANY-CN201807008935

PATIENT
  Age: 56 Year
  Sex: Male

DRUGS (1)
  1. LISPRO [Suspect]
     Active Substance: INSULIN LISPRO
     Indication: DIABETES MELLITUS
     Dosage: UNK UNK, UNKNOWN
     Route: 058

REACTIONS (4)
  - Blood glucose abnormal [Unknown]
  - Blood glucose abnormal [Unknown]
  - Incorrect dose administered [Unknown]
  - Arrhythmia [Unknown]

NARRATIVE: CASE EVENT DATE: 2016
